FAERS Safety Report 4580359-5 (Version None)
Quarter: 2005Q1

REPORT INFORMATION
  Report Type: 
  Country: None (occurrence: None)
  Receive Date: 20050214
  Receipt Date: 20040106
  Transmission Date: 20050727
  Serious: No
  Sender: FDA-Public Use
  Company Number: US-GLAXOSMITHKLINE-A0491738A

PATIENT
  Age: 40 Year
  Sex: Male
  Weight: 72 kg

DRUGS (4)
  1. LAMICTAL [Suspect]
     Indication: BIPOLAR DISORDER
     Dosage: 225MG TWICE PER DAY
     Route: 048
     Dates: start: 20030601, end: 20030801
  2. WELLBUTRIN SR [Concomitant]
     Indication: BIPOLAR DISORDER
     Dosage: 200MG IN THE MORNING
     Route: 048
     Dates: start: 20030612
  3. AMBIEN [Concomitant]
     Indication: BIPOLAR DISORDER
     Dosage: 10MG AT NIGHT
     Route: 048
     Dates: start: 20030612
  4. TRAZODONE [Concomitant]
     Indication: BIPOLAR DISORDER
     Dosage: 50MG AT NIGHT
     Route: 048
     Dates: start: 20030612

REACTIONS (1)
  - RASH [None]
